FAERS Safety Report 8890435 (Version 3)
Quarter: 2013Q2

REPORT INFORMATION
  Report Type: Spontaneous
  Country: US (occurrence: US)
  Receive Date: 20121107
  Receipt Date: 20130516
  Transmission Date: 20140414
  Serious: Yes (Other)
  Sender: FDA-Public Use
  Company Number: US-BAYER-2012-114921

PATIENT
  Sex: Female
  Weight: 73.47 kg

DRUGS (27)
  1. BETASERON [Suspect]
     Indication: MULTIPLE SCLEROSIS
     Dosage: 0.25 MG, QOD
     Route: 058
     Dates: start: 201010, end: 201212
  2. BACLOFEN [Concomitant]
     Dosage: 20 MG, UNK
     Dates: start: 199910
  3. COPAXONE [Concomitant]
     Dosage: 20 MG/ML, UNK
  4. AMANTADINE [Concomitant]
     Dosage: 100 MG, BID
  5. ATENOLOL CHLORTHALIDONE [Concomitant]
     Dosage: 100/50 MG,1 DF QD
     Dates: start: 200605
  6. MACRODANTIN [Concomitant]
     Dosage: 50 MG, QD
  7. METHYLDOPA-HYDROCHLOROTHIAZIDE [Concomitant]
     Dosage: 1 DF (250MG), BID
     Dates: start: 201210
  8. NEURONTIN [Concomitant]
     Indication: UNEVALUABLE EVENT
     Dosage: 400 MG, BID
  9. NEURONTIN [Concomitant]
     Indication: ANTIVIRAL PROPHYLAXIS
  10. NEXIUM [Concomitant]
     Dosage: 20 MG, UNK
  11. LOPERAMIDE [Concomitant]
     Dosage: 2 MG, UNK
  12. MECLIZINE [Concomitant]
     Dosage: 25 MG, QD
     Dates: start: 200808
  13. LOSARTAN POTASSIUM [Concomitant]
     Dosage: 100 MG, QD
     Dates: start: 201205
  14. ADVAIR DISKUS [Concomitant]
     Dosage: 1 DF, BID
     Route: 055
     Dates: start: 200904
  15. VAGIFEM [Concomitant]
     Dosage: 25 ?G, 2XWEEKLY
     Route: 067
  16. KLOR-CON [Concomitant]
     Dosage: 20 MG, BID (AM AND PM)
  17. VITAMIN E [Concomitant]
     Dosage: 1000 U, UNK
  18. CALCIUM [Concomitant]
     Dosage: 500 UNK, UNK
  19. CRANBERRY [Concomitant]
  20. MAGNESIUM [Concomitant]
     Dosage: 300 MG, UNK
  21. MULTIVITAMIN [Concomitant]
  22. VITAMIN D [Concomitant]
     Dosage: 1000 U, UNK
  23. OMEGA-3 [Concomitant]
  24. FISH OIL [Concomitant]
  25. HEPARIN FLUSH [Concomitant]
     Dosage: 100 UNIT/ML
  26. OXYGEN [Concomitant]
     Dosage: 2 L, HS
  27. LASIX [Suspect]

REACTIONS (9)
  - Multiple sclerosis relapse [Unknown]
  - Pneumonia [None]
  - Vision blurred [Unknown]
  - Dry eye [Recovering/Resolving]
  - Cystitis [Recovering/Resolving]
  - Multiple sclerosis relapse [Recovering/Resolving]
  - Hypersensitivity [None]
  - Loss of consciousness [None]
  - Malaise [Recovering/Resolving]
